FAERS Safety Report 5208878-9 (Version None)
Quarter: 2007Q1

REPORT INFORMATION
  Report Type: 
  Country: None (occurrence: None)
  Receive Date: 20070116
  Receipt Date: 20070111
  Transmission Date: 20070707
  Serious: Yes (Hospitalization, Other)
  Sender: FDA-Public Use
  Company Number: DE-ELI_LILLY_AND_COMPANY-DE200701002398

PATIENT
  Age: 40 Year
  Sex: Male

DRUGS (3)
  1. ZYPREXA [Suspect]
     Indication: DELUSIONAL DISORDER, PERSECUTORY TYPE
     Dosage: 35 MG, DAILY (1/D)
     Route: 048
     Dates: end: 20061110
  2. TRUXAL /SWE/ [Concomitant]
     Dosage: 60 MG, DAILY (1/D)
     Route: 048
     Dates: start: 20060601, end: 20061101
  3. TRUXAL /SWE/ [Concomitant]
     Dosage: 160 MG, DAILY (1/D)
     Route: 048
     Dates: start: 20061101

REACTIONS (7)
  - ANURIA [None]
  - BLOOD CREATINE PHOSPHOKINASE INCREASED [None]
  - BLOOD CREATININE INCREASED [None]
  - CONVULSION [None]
  - FALL [None]
  - PRESCRIBED OVERDOSE [None]
  - SPEECH DISORDER [None]
